FAERS Safety Report 14995574 (Version 2)
Quarter: 2022Q1

REPORT INFORMATION
  Report Type: Spontaneous
  Country: NL (occurrence: NL)
  Receive Date: 20180611
  Receipt Date: 20220228
  Transmission Date: 20220424
  Serious: Yes (Death, Other)
  Sender: FDA-Public Use
  Company Number: NL-ASTELLAS-2018US026032

PATIENT
  Age: 3 Year
  Sex: Female

DRUGS (4)
  1. TACROLIMUS [Suspect]
     Active Substance: TACROLIMUS
     Indication: Intestinal transplant
     Dosage: UNK UNK, UNKNOWN FREQ.
     Route: 065
  2. TACROLIMUS [Suspect]
     Active Substance: TACROLIMUS
     Dosage: UNK UNK, UNKNOWN FREQ.
     Route: 065
  3. PREDNISOLONE [Concomitant]
     Active Substance: PREDNISOLONE
     Indication: Intestinal transplant
     Dosage: (7.5 MG/DAY (0.3 MG/KG/DAY), ONCE DAILY
     Route: 065
  4. PREDNISOLONE [Concomitant]
     Active Substance: PREDNISOLONE
     Dosage: 0.7 TO 1.1 MG/KG, ONCE DAILY
     Route: 065

REACTIONS (6)
  - Pneumonia pseudomonal [Fatal]
  - Bacterial infection [Fatal]
  - Opportunistic infection [Fatal]
  - Epstein-Barr virus associated lymphoproliferative disorder [Recovered/Resolved]
  - Infection [Unknown]
  - Pneumonia [Unknown]
